FAERS Safety Report 11642425 (Version 1)
Quarter: 2015Q4

REPORT INFORMATION
  Report Type: Report from Study
  Country: US (occurrence: US)
  Receive Date: 20151019
  Receipt Date: 20151019
  Transmission Date: 20160304
  Serious: Yes (Other)
  Sender: FDA-Public Use
  Company Number: US-AMGEN-USASL2015108887

PATIENT
  Sex: Female

DRUGS (1)
  1. ENBREL [Suspect]
     Active Substance: ETANERCEPT
     Indication: RHEUMATOID ARTHRITIS
     Dosage: UNK UNK, UNK
     Route: 065
     Dates: start: 2012

REACTIONS (7)
  - Headache [Unknown]
  - Tendon sheath incision [Unknown]
  - Carpal tunnel decompression [Unknown]
  - Tendon operation [Unknown]
  - Sinus disorder [Unknown]
  - Joint arthroplasty [Unknown]
  - Mobility decreased [Unknown]
